FAERS Safety Report 5120568-X (Version None)
Quarter: 2006Q4

REPORT INFORMATION
  Report Type: 
  Country: None (occurrence: None)
  Receive Date: 20061004
  Receipt Date: 20060921
  Transmission Date: 20070319
  Serious: Yes (Hospitalization)
  Sender: FDA-Public Use
  Company Number: PHBS2006IT14737

PATIENT
  Age: 61 Year
  Sex: Female

DRUGS (10)
  1. ZOMETA [Suspect]
     Indication: MULTIPLE MYELOMA
     Dosage: 4 MG CYCLIC
     Route: 042
     Dates: start: 20041101, end: 20050505
  2. THALIDOMIDE [Concomitant]
  3. DEXAMETHASONE TAB [Concomitant]
  4. VINCRISTINE [Concomitant]
  5. MELPHALAN [Concomitant]
  6. CYCLOPHOSPHAMIDE [Concomitant]
  7. PREDNISONE [Concomitant]
  8. ASPIRIN [Concomitant]
  9. LORTAAN [Concomitant]
  10. ANTISEPTICS [Suspect]

REACTIONS (1)
  - OSTEONECROSIS [None]
